FAERS Safety Report 8846883 (Version 1)
Quarter: 2012Q4

REPORT INFORMATION
  Report Type: 
  Country: US (occurrence: US)
  Receive Date: 20121018
  Receipt Date: 20121018
  Transmission Date: 20130627
  Serious: Yes (Other)
  Sender: FDA-Public Use
  Company Number: US-PFIZER INC-2012256506

PATIENT
  Sex: Female

DRUGS (1)
  1. VANCOMYCIN HCL [Suspect]
     Indication: CLOSTRIDIAL INFECTION
     Dosage: 1 DF, 4x/day
     Route: 048
     Dates: start: 20120915

REACTIONS (2)
  - Clostridium difficile colitis [Not Recovered/Not Resolved]
  - Drug ineffective [Unknown]
